FAERS Safety Report 5884591-X (Version None)
Quarter: 2008Q3

REPORT INFORMATION
  Report Type: 
  Country: None (occurrence: None)
  Receive Date: 20080911
  Receipt Date: 20080829
  Transmission Date: 20090109
  Serious: Yes (Life-Threatening, Hospitalization)
  Sender: FDA-Public Use
  Company Number: 94982

PATIENT
  Age: 3 Year
  Sex: Female

DRUGS (1)
  1. ACETAMINOPHEN [Suspect]
     Dosage: 6 G/DAY / UNK / ORAL
     Route: 048

REACTIONS (3)
  - LIVER INJURY [None]
  - OVERDOSE [None]
  - TRANSAMINASES INCREASED [None]
